FAERS Safety Report 5226357-X (Version None)
Quarter: 2007Q1

REPORT INFORMATION
  Report Type: 
  Country: None (occurrence: None)
  Receive Date: 20070201
  Receipt Date: 20070125
  Transmission Date: 20070707
  Serious: Yes (Hospitalization)
  Sender: FDA-Public Use
  Company Number: FRWYE764623AUG06

PATIENT
  Age: 16 Year
  Sex: Female

DRUGS (7)
  1. RHINADVIL [Suspect]
     Dosage: UNKNOWN
     Route: 048
     Dates: start: 20060528, end: 20060607
  2. RHINADVIL [Suspect]
     Dosage: ONE TENTH, THEN FOUR TENTH, THEN SIX TENTH OF A DOSE
     Route: 048
  3. SPASFON [Concomitant]
     Dosage: UNKNOWN
     Dates: end: 20060601
  4. SPASFON [Concomitant]
     Dosage: ONE TENTH, THEN FOUR TENTH, THEN SIX TENTH OF A DOSE
  5. ACETAMINOPHEN [Concomitant]
     Dosage: UNKNOWN
     Dates: end: 20060601
  6. ACETAMINOPHEN [Concomitant]
     Dosage: ONE TABLET
     Route: 048
  7. BACTRIM [Suspect]
     Dosage: UNKNOWN
     Route: 048
     Dates: start: 20060528, end: 20060607

REACTIONS (7)
  - CYTOLYTIC HEPATITIS [None]
  - ERYTHEMA [None]
  - LEUKOPENIA [None]
  - ODYNOPHAGIA [None]
  - PRURITUS [None]
  - PYREXIA [None]
  - THROMBOCYTOPENIA [None]
